FAERS Safety Report 6487071-6 (Version None)
Quarter: 2009Q4

REPORT INFORMATION
  Report Type: 
  Country: None (occurrence: None)
  Receive Date: 20091210
  Receipt Date: 20091126
  Transmission Date: 20100525
  Serious: Yes (Hospitalization)
  Sender: FDA-Public Use
  Company Number: DE-ELI_LILLY_AND_COMPANY-DE200911006929

PATIENT
  Sex: Female

DRUGS (3)
  1. FLUCTIN [Suspect]
     Dosage: 20 MG, UNKNOWN
     Route: 048
  2. LORAZEPAM [Concomitant]
     Dosage: 10 MG, UNKNOWN
     Route: 048
  3. PAROXETINE [Concomitant]
     Dosage: 20 MG, UNKNOWN
     Route: 048

REACTIONS (3)
  - ACCIDENTAL EXPOSURE [None]
  - GAIT DISTURBANCE [None]
  - HOSPITALISATION [None]
